FAERS Safety Report 5530010-2 (Version None)
Quarter: 2007Q4

REPORT INFORMATION
  Report Type: 
  Country: None (occurrence: None)
  Receive Date: 20071127
  Receipt Date: 20071119
  Transmission Date: 20080405
  Serious: Yes (Other)
  Sender: FDA-Public Use
  Company Number: 163-21880-07111053

PATIENT
  Sex: Female

DRUGS (1)
  1. REVLIMID [Suspect]
     Indication: PREGNANCY OF PARTNER

REACTIONS (2)
  - PREGNANCY OF PARTNER [None]
  - TRANSMISSION OF DRUG VIA SEMEN [None]
